FAERS Safety Report 21375041 (Version 1)
Quarter: 2022Q3

REPORT INFORMATION
  Report Type: Spontaneous
  Country: US (occurrence: None)
  Receive Date: 20220924
  Receipt Date: 20220924
  Transmission Date: 20221027
  Serious: Yes (Life-Threatening, Hospitalization)
  Sender: FDA-Public Use
  Company Number: None

PATIENT
  Age: 65 Year
  Sex: Female
  Weight: 56.25 kg

DRUGS (7)
  1. BEBTELOVIMAB [Suspect]
     Active Substance: BEBTELOVIMAB
     Indication: COVID-19
     Route: 042
     Dates: start: 20220623, end: 20220623
  2. Adderal xR 15 my [Concomitant]
  3. albuterol as needed [Concomitant]
  4. D [Concomitant]
  5. turmeric [Concomitant]
  6. COLLAGEN [Concomitant]
     Active Substance: COLLAGEN
  7. CALCIUM [Concomitant]
     Active Substance: CALCIUM

REACTIONS (10)
  - Chills [None]
  - Nausea [None]
  - Dizziness [None]
  - Blood pressure increased [None]
  - Cyanosis [None]
  - Headache [None]
  - Confusional state [None]
  - Fatigue [None]
  - Chest discomfort [None]
  - Hyperhidrosis [None]

NARRATIVE: CASE EVENT DATE: 20220623
